FAERS Safety Report 16238085 (Version 5)
Quarter: 2019Q4

REPORT INFORMATION
  Report Type: Report from Study
  Country: JP (occurrence: JP)
  Receive Date: 20190425
  Receipt Date: 20191129
  Transmission Date: 20200122
  Serious: Yes (Death, Other)
  Sender: FDA-Public Use
  Company Number: JP-BRISTOL-MYERS SQUIBB COMPANY-BMS-2019-040515

PATIENT
  Age: 87 Year
  Sex: Female
  Weight: 54 kg

DRUGS (6)
  1. NIVOLUMAB [Suspect]
     Active Substance: NIVOLUMAB
     Indication: PRODUCT USED FOR UNKNOWN INDICATION
     Dosage: 200 MILLIGRAM
     Route: 041
     Dates: start: 20190621, end: 20190621
  2. NIVOLUMAB [Suspect]
     Active Substance: NIVOLUMAB
     Indication: HODGKIN^S DISEASE
     Dosage: 140 MILLIGRAM
     Route: 041
     Dates: start: 20180712, end: 20180712
  3. ADCETRIS [Suspect]
     Active Substance: BRENTUXIMAB VEDOTIN
     Indication: PRODUCT USED FOR UNKNOWN INDICATION
     Dosage: UNK
     Route: 065
  4. BLEOMYCIN HYDROCHLORIDE [Suspect]
     Active Substance: BLEOMYCIN HYDROCHLORIDE
     Indication: PRODUCT USED FOR UNKNOWN INDICATION
     Dosage: UNK
     Route: 065
  5. NIVOLUMAB [Suspect]
     Active Substance: NIVOLUMAB
     Indication: PRODUCT USED FOR UNKNOWN INDICATION
     Dosage: 160 MILLIGRAM
     Route: 041
     Dates: start: 20180727, end: 20180824
  6. NIVOLUMAB [Suspect]
     Active Substance: NIVOLUMAB
     Indication: PRODUCT USED FOR UNKNOWN INDICATION
     Dosage: 160 MILLIGRAM
     Route: 041
     Dates: start: 20190121, end: 20190607

REACTIONS (4)
  - Pneumonia [Recovering/Resolving]
  - Malignant neoplasm progression [Fatal]
  - Interstitial lung disease [Not Recovered/Not Resolved]
  - Pseudomonas infection [Unknown]

NARRATIVE: CASE EVENT DATE: 20180907
